FAERS Safety Report 23259312 (Version 2)
Quarter: 2023Q4

REPORT INFORMATION
  Report Type: Spontaneous
  Country: US (occurrence: US)
  Receive Date: 20231204
  Receipt Date: 20231213
  Transmission Date: 20240110
  Serious: Yes (Other)
  Sender: FDA-Public Use
  Company Number: US-VERTEX PHARMACEUTICALS-2023-017988

PATIENT
  Age: 10 Year
  Sex: Female

DRUGS (9)
  1. TRIKAFTA [Suspect]
     Active Substance: ELEXACAFTOR\IVACAFTOR\TEZACAFTOR
     Indication: Cystic fibrosis
     Dosage: 2 ORANGE TABS IN THE AM AND 1 BLUE TAB IN THE PM
     Route: 048
     Dates: start: 20231117, end: 20231126
  2. CREON [Concomitant]
     Active Substance: PANCRELIPASE AMYLASE\PANCRELIPASE LIPASE\PANCRELIPASE PROTEASE
  3. FLUTICASONE [Concomitant]
     Active Substance: FLUTICASONE
  4. CAYSTON [Concomitant]
     Active Substance: AZTREONAM
  5. AZITHROMYCIN [Concomitant]
     Active Substance: AZITHROMYCIN
  6. SODIUM CHLORIDE [Concomitant]
     Active Substance: SODIUM CHLORIDE
     Route: 055
  7. TOBI [Concomitant]
     Active Substance: TOBRAMYCIN
  8. ALBUTEROL SULFATE [Concomitant]
     Active Substance: ALBUTEROL SULFATE
  9. PULMOZYME [Concomitant]
     Active Substance: DORNASE ALFA

REACTIONS (9)
  - Urticaria [Recovered/Resolved]
  - Oropharyngeal pain [Recovered/Resolved]
  - Lip swelling [Recovered/Resolved]
  - Eye swelling [Recovered/Resolved]
  - Productive cough [Recovered/Resolved]
  - Sputum discoloured [Recovered/Resolved]
  - Pyrexia [Recovered/Resolved]
  - Pruritus [Recovered/Resolved]
  - Rhinorrhoea [Recovered/Resolved]

NARRATIVE: CASE EVENT DATE: 20231125
